FAERS Safety Report 9286500 (Version 1)
Quarter: 2013Q2

REPORT INFORMATION
  Report Type: Spontaneous
  Country: FR (occurrence: FR)
  Receive Date: 20130513
  Receipt Date: 20130513
  Transmission Date: 20140414
  Serious: Yes (Other)
  Sender: FDA-Public Use
  Company Number: FR-BRISTOL-MYERS SQUIBB COMPANY-18719047

PATIENT
  Age: 15 Year
  Sex: Male
  Weight: 62.7 kg

DRUGS (5)
  1. ABILIFY [Suspect]
     Indication: AUTISM SPECTRUM DISORDER
     Route: 048
     Dates: start: 20130306, end: 20130311
  2. ABILIFY [Suspect]
     Indication: SCHIZOPHRENIA
     Route: 048
     Dates: start: 20130306, end: 20130311
  3. METHYLPHENIDATE [Concomitant]
     Indication: ATTENTION DEFICIT/HYPERACTIVITY DISORDER
     Route: 048
     Dates: start: 201211
  4. METHYLPHENIDATE [Concomitant]
     Indication: AUTISM SPECTRUM DISORDER
     Route: 048
     Dates: start: 201211
  5. CHLORAL HYDRATE [Concomitant]
     Dates: start: 201211

REACTIONS (1)
  - Macroglossia [Recovered/Resolved]
